FAERS Safety Report 22620692 (Version 1)
Quarter: 2023Q2

REPORT INFORMATION
  Report Type: Spontaneous
  Country: CA (occurrence: CA)
  Receive Date: 20230620
  Receipt Date: 20230620
  Transmission Date: 20230721
  Serious: Yes (Life-Threatening, Hospitalization)
  Sender: FDA-Public Use
  Company Number: CA-FreseniusKabi-FK202308733

PATIENT
  Age: 29 Year
  Sex: Male

DRUGS (2)
  1. MORPHINE [Suspect]
     Active Substance: MORPHINE
     Indication: Product used for unknown indication
     Dosage: NOT SPECIFIED
     Route: 065
  2. CARVEDILOL [Concomitant]
     Active Substance: CARVEDILOL
     Indication: Product used for unknown indication
     Dosage: TABLETS

REACTIONS (3)
  - Coma [Recovered/Resolved]
  - Drug interaction [Recovered/Resolved]
  - Hypoxia [Recovered/Resolved]
